FAERS Safety Report 11172457 (Version 1)
Quarter: 2015Q2

REPORT INFORMATION
  Report Type: Spontaneous
  Country: US (occurrence: US)
  Receive Date: 20150608
  Receipt Date: 20150608
  Transmission Date: 20150821
  Serious: No
  Sender: FDA-Public Use
  Company Number: US-AMGEN-USASP2014093630

PATIENT

DRUGS (1)
  1. PROCRIT [Suspect]
     Active Substance: ERYTHROPOIETIN
     Indication: PRODUCT USED FOR UNKNOWN INDICATION
     Dosage: 120000 UNIT, PER WEEK OF PROCRIT EVERY TWO WEEKS
     Route: 065

REACTIONS (2)
  - Drug ineffective [Unknown]
  - Serum ferritin abnormal [Unknown]
